FAERS Safety Report 12683677 (Version 4)
Quarter: 2016Q4

REPORT INFORMATION
  Report Type: Spontaneous
  Country: US (occurrence: US)
  Receive Date: 20160825
  Receipt Date: 20161219
  Transmission Date: 20170207
  Serious: Yes (Death, Other)
  Sender: FDA-Public Use
  Company Number: US-MALLINCKRODT-T201603885

PATIENT
  Age: 21 Month
  Sex: Female
  Weight: 11 kg

DRUGS (18)
  1. UVADEX [Suspect]
     Active Substance: METHOXSALEN
     Dosage: UNK
     Route: 057
  2. HEPARIN [Suspect]
     Active Substance: HEPARIN SODIUM
     Dosage: 250 U/KG AND AC RATIO 10:1
     Route: 065
  3. UVADEX [Suspect]
     Active Substance: METHOXSALEN
     Dosage: UNK
     Route: 057
     Dates: start: 20160811, end: 20160811
  4. HEPARIN [Suspect]
     Active Substance: HEPARIN SODIUM
     Dosage: 250 U/KG AND AC RATIO 10:1
     Route: 065
  5. UVADEX [Suspect]
     Active Substance: METHOXSALEN
     Indication: GRAFT VERSUS HOST DISEASE
     Dosage: UNK
     Route: 057
     Dates: start: 20160726, end: 20160726
  6. UVADEX [Suspect]
     Active Substance: METHOXSALEN
     Dosage: UNK
     Route: 057
  7. UVADEX [Suspect]
     Active Substance: METHOXSALEN
     Dosage: UNK
     Route: 057
  8. UVADEX [Suspect]
     Active Substance: METHOXSALEN
     Dosage: UNK
     Route: 057
  9. HEPARIN [Suspect]
     Active Substance: HEPARIN SODIUM
     Indication: ANTICOAGULANT THERAPY
     Dosage: 180 U
     Route: 065
     Dates: start: 20160811, end: 20160811
  10. HEPARIN [Suspect]
     Active Substance: HEPARIN SODIUM
     Dosage: 250 U/KG AND AC RATIO 10:1
     Route: 065
  11. HEPARIN [Suspect]
     Active Substance: HEPARIN SODIUM
     Dosage: 250 U/KG AND AC RATIO 10:1
     Route: 065
  12. UVADEX [Suspect]
     Active Substance: METHOXSALEN
     Dosage: UNK
     Route: 057
  13. UVADEX [Suspect]
     Active Substance: METHOXSALEN
     Dosage: UNK
     Route: 057
  14. HEPARIN [Suspect]
     Active Substance: HEPARIN SODIUM
     Dosage: 250 U/KG AND AC RATIO 10:1
     Route: 065
  15. UVADEX [Suspect]
     Active Substance: METHOXSALEN
     Dosage: UNK
     Route: 057
     Dates: start: 20160729, end: 20160729
  16. UVADEX [Suspect]
     Active Substance: METHOXSALEN
     Dosage: UNK
     Route: 057
  17. HEPARIN [Suspect]
     Active Substance: HEPARIN SODIUM
     Dosage: 250 U/KG AND AC RATIO 10:1
     Route: 065
  18. HEPARIN [Suspect]
     Active Substance: HEPARIN SODIUM
     Dosage: 250 U/KG AND AC RATIO 10:1
     Route: 065

REACTIONS (7)
  - Sepsis [Fatal]
  - Pallor [Unknown]
  - Haemoglobin decreased [Unknown]
  - Blood lactate dehydrogenase increased [Unknown]
  - Blood bilirubin increased [Unknown]
  - Drug ineffective for unapproved indication [Unknown]
  - Haemolysis [Unknown]

NARRATIVE: CASE EVENT DATE: 20160726
